FAERS Safety Report 8375429-X (Version None)
Quarter: 2012Q2

REPORT INFORMATION
  Report Type: 
  Country: None (occurrence: None)
  Receive Date: 20120522
  Receipt Date: 20120516
  Transmission Date: 20120825
  Serious: No
  Sender: FDA-Public Use
  Company Number: US-BIOGENIDEC-2012BI017326

PATIENT
  Age: 23 Year
  Sex: Female

DRUGS (1)
  1. TYSABRI [Suspect]
     Indication: MULTIPLE SCLEROSIS
     Route: 042
     Dates: start: 20120501

REACTIONS (7)
  - CONTUSION [None]
  - RASH PRURITIC [None]
  - NAUSEA [None]
  - HEADACHE [None]
  - AMNESIA [None]
  - DYSARTHRIA [None]
  - DIZZINESS [None]
